FAERS Safety Report 14901595 (Version 2)
Quarter: 2018Q2

REPORT INFORMATION
  Report Type: Spontaneous
  Country: US (occurrence: US)
  Receive Date: 20180516
  Receipt Date: 20180531
  Transmission Date: 20180711
  Serious: Yes (Hospitalization)
  Sender: FDA-Public Use
  Company Number: US-BIOMARINAP-US-2018-118193

PATIENT
  Sex: Male
  Weight: 74.38 kg

DRUGS (1)
  1. NAGLAZYME [Suspect]
     Active Substance: GALSULFASE
     Indication: MUCOPOLYSACCHARIDOSIS
     Dosage: 90 MG, QW
     Route: 042
     Dates: start: 20060401

REACTIONS (2)
  - Wound infection [Not Recovered/Not Resolved]
  - Decubitus ulcer [Recovering/Resolving]
